FAERS Safety Report 17105967 (Version 2)
Quarter: 2019Q4

REPORT INFORMATION
  Report Type: Report from Study
  Country: BR (occurrence: BR)
  Receive Date: 20191203
  Receipt Date: 20191209
  Transmission Date: 20200122
  Serious: Yes (Other)
  Sender: FDA-Public Use
  Company Number: PHHY2019BR038905

PATIENT
  Age: 42 Year
  Sex: Male
  Weight: 70 kg

DRUGS (1)
  1. GILENYA [Suspect]
     Active Substance: FINGOLIMOD HYDROCHLORIDE
     Indication: MULTIPLE SCLEROSIS
     Dosage: 0.5 MG, QD
     Route: 048

REACTIONS (8)
  - Sensory loss [Not Recovered/Not Resolved]
  - Abdominal pain upper [Not Recovered/Not Resolved]
  - Balance disorder [Not Recovered/Not Resolved]
  - Memory impairment [Unknown]
  - Multiple sclerosis relapse [Not Recovered/Not Resolved]
  - Stress [Not Recovered/Not Resolved]
  - Limb discomfort [Not Recovered/Not Resolved]
  - Nervousness [Not Recovered/Not Resolved]

NARRATIVE: CASE EVENT DATE: 201704
